FAERS Safety Report 17101891 (Version 2)
Quarter: 2020Q1

REPORT INFORMATION
  Report Type: Spontaneous
  Country: JP (occurrence: JP)
  Receive Date: 20191202
  Receipt Date: 20200106
  Transmission Date: 20200409
  Serious: Yes (Hospitalization)
  Sender: FDA-Public Use
  Company Number: JP-BAUSCH-BL-2019-063515

PATIENT
  Age: 59 Year
  Sex: Male

DRUGS (1)
  1. MIKELUNA COMBINATION OPHTHALMIC SOLUTION [Suspect]
     Active Substance: CARTEOLOL HYDROCHLORIDE\LATANOPROST
     Indication: GLAUCOMA
     Dosage: BOTH EYES
     Route: 047
     Dates: start: 20191113, end: 20191128

REACTIONS (1)
  - Hypoglycaemic coma [Recovered/Resolved]

NARRATIVE: CASE EVENT DATE: 20191116
